FAERS Safety Report 5152757-2 (Version None)
Quarter: 2006Q4

REPORT INFORMATION
  Report Type: 
  Country: None (occurrence: None)
  Receive Date: 20060918
  Receipt Date: 20050801
  Transmission Date: 20070319
  Serious: Yes (Hospitalization)
  Sender: FDA-Public Use
  Company Number: US-JNJFOC-20050701222

PATIENT
  Age: 51 Year
  Sex: Male

DRUGS (5)
  1. TOPAMAX [Suspect]
     Indication: TREMOR
     Dosage: 25 MG, IN 1 DAY, ORAL
     Route: 048
  2. CRESTOR [Concomitant]
  3. TENORMIN [Concomitant]
  4. ASPIRIN [Concomitant]
  5. MULTIVITAMIN [Concomitant]

REACTIONS (1)
  - GLAUCOMA [None]
